FAERS Safety Report 20460766 (Version 1)
Quarter: 2022Q1

REPORT INFORMATION
  Report Type: Report from Study
  Country: US (occurrence: US)
  Receive Date: 20220211
  Receipt Date: 20220211
  Transmission Date: 20220423
  Serious: Yes (Hospitalization)
  Sender: FDA-Public Use
  Company Number: US-JAZZ-2021-US-017025

PATIENT
  Age: 4 Year
  Sex: Female
  Weight: 16.5 kg

DRUGS (6)
  1. ASPARAGINASE ERWINIA CHRYSANTHEMI [Suspect]
     Active Substance: ASPARAGINASE ERWINIA CHRYSANTHEMI
     Dosage: 25 MILLIGRAM/SQ. METER, 3XWEEKLY PER 2W COURSE
     Route: 042
     Dates: start: 20210621
  2. ASPARAGINASE ERWINIA CHRYSANTHEMI [Suspect]
     Active Substance: ASPARAGINASE ERWINIA CHRYSANTHEMI
     Dosage: UNK, 3XWEEKLY PER 2W COURSE
     Route: 042
     Dates: end: 20210702
  3. PEPCID AC [Concomitant]
     Active Substance: FAMOTIDINE
     Dosage: 20 MILLIGRAM, SINGLE
     Route: 042
     Dates: start: 20210623, end: 20210623
  4. PALONOSETRON [Concomitant]
     Active Substance: PALONOSETRON
     Dosage: 25 MILLIGRAM, SINGLE
     Route: 042
     Dates: start: 20210630, end: 20210630
  5. VINCRISTINE [Concomitant]
     Active Substance: VINCRISTINE
     Dosage: 1.01 MILLIGRAM, SINGLE
     Route: 042
     Dates: start: 20210630, end: 20210630
  6. DOXORUBICIN [Concomitant]
     Active Substance: DOXORUBICIN
     Dosage: 16.76 MILLIGRAM, SINGLE
     Route: 042
     Dates: start: 20210630, end: 20210630

REACTIONS (1)
  - Vomiting [Recovered/Resolved]

NARRATIVE: CASE EVENT DATE: 20210702
